FAERS Safety Report 7402397-7 (Version None)
Quarter: 2011Q2

REPORT INFORMATION
  Report Type: 
  Country: None (occurrence: None)
  Receive Date: 20110408
  Receipt Date: 20110405
  Transmission Date: 20111010
  Serious: No
  Sender: FDA-Public Use
  Company Number: US-TEVA-275072USA

PATIENT
  Sex: Female
  Weight: 71.732 kg

DRUGS (4)
  1. PLAN B ONE-STEP [Suspect]
     Indication: POST COITAL CONTRACEPTION
     Route: 048
     Dates: start: 20110404, end: 20110404
  2. PROPRANOLOL [Concomitant]
     Indication: HEADACHE
  3. ORTHO TRI-CYCLEN LO [Concomitant]
     Indication: CONTRACEPTION
  4. CONCERTA [Concomitant]
     Indication: ATTENTION DEFICIT/HYPERACTIVITY DISORDER

REACTIONS (3)
  - MENSTRUATION IRREGULAR [None]
  - HEADACHE [None]
  - PELVIC PAIN [None]
